FAERS Safety Report 14715758 (Version 2)
Quarter: 2018Q2

REPORT INFORMATION
  Report Type: Spontaneous
  Country: US (occurrence: US)
  Receive Date: 20180404
  Receipt Date: 20180411
  Transmission Date: 20180711
  Serious: Yes (Other)
  Sender: FDA-Public Use
  Company Number: US-AMGEN-USASP2017192981

PATIENT
  Age: 71 Year
  Sex: Female
  Weight: 49.8 kg

DRUGS (6)
  1. ADVIL [Suspect]
     Active Substance: IBUPROFEN
     Indication: PAIN
     Dosage: UNK
     Route: 065
  2. CARVEDILOL. [Concomitant]
     Active Substance: CARVEDILOL
     Dosage: UNK UNK, QD
  3. PROLIA [Suspect]
     Active Substance: DENOSUMAB
     Indication: PRODUCT USED FOR UNKNOWN INDICATION
     Dosage: UNK
     Route: 065
     Dates: start: 201705
  4. ALEVE [Suspect]
     Active Substance: NAPROXEN SODIUM
     Indication: PAIN
     Dosage: UNK
     Route: 065
  5. NORVASC [Concomitant]
     Active Substance: AMLODIPINE BESYLATE
     Dosage: UNK UNK, QD
  6. CLONIDINE. [Concomitant]
     Active Substance: CLONIDINE
     Dosage: UNK UNK, QD

REACTIONS (28)
  - Alopecia [Recovered/Resolved]
  - Gastric disorder [Unknown]
  - Palpitations [Unknown]
  - Oral mucosal blistering [Recovered/Resolved]
  - Temporomandibular joint syndrome [Not Recovered/Not Resolved]
  - Nausea [Unknown]
  - Balance disorder [Unknown]
  - Neck pain [Not Recovered/Not Resolved]
  - Arthropathy [Unknown]
  - Loss of personal independence in daily activities [Unknown]
  - Atrial fibrillation [Unknown]
  - Facial pain [Not Recovered/Not Resolved]
  - Toothache [Unknown]
  - Sleep disorder [Unknown]
  - Musculoskeletal chest pain [Unknown]
  - Hypophagia [Unknown]
  - Weight decreased [Unknown]
  - Peripheral swelling [Unknown]
  - Fall [Unknown]
  - Stomatitis [Unknown]
  - Stress [Unknown]
  - Arthralgia [Not Recovered/Not Resolved]
  - Pain in extremity [Not Recovered/Not Resolved]
  - Ear pain [Not Recovered/Not Resolved]
  - Pain in jaw [Not Recovered/Not Resolved]
  - Headache [Unknown]
  - Ill-defined disorder [Unknown]
  - Back pain [Not Recovered/Not Resolved]

NARRATIVE: CASE EVENT DATE: 2017
